FAERS Safety Report 8314065-8 (Version None)
Quarter: 2012Q2

REPORT INFORMATION
  Report Type: 
  Country: None (occurrence: None)
  Receive Date: 20120426
  Receipt Date: 20120417
  Transmission Date: 20120825
  Serious: Yes (Hospitalization)
  Sender: FDA-Public Use
  Company Number: DE-VERTEX PHARMACEUTICALS INC.-000000000000000550

PATIENT
  Sex: Female
  Weight: 66 kg

DRUGS (4)
  1. INCIVO [Suspect]
     Indication: HEPATITIS C
     Dosage: DOSAGE FORM: TABLET
     Route: 048
     Dates: start: 20120319, end: 20120417
  2. COPEGUS [Concomitant]
     Dosage: 2-0-2 SINCE 13-APR-2012
     Route: 048
     Dates: start: 20120413
  3. PEGASYS [Concomitant]
     Indication: HEPATITIS C
     Route: 058
     Dates: start: 20120319
  4. COPEGUS [Concomitant]
     Indication: HEPATITIS C
     Dosage: DAILY DOSE: 2-0-3 FROM 19-MAR-2012 TO 12-APR-2012
     Route: 048
     Dates: start: 20120319, end: 20120412

REACTIONS (1)
  - DRUG RASH WITH EOSINOPHILIA AND SYSTEMIC SYMPTOMS [None]
